FAERS Safety Report 10007317 (Version 2)
Quarter: 2014Q1

REPORT INFORMATION
  Report Type: Spontaneous
  Country: IT (occurrence: None)
  Receive Date: 20140311
  Receipt Date: 20140318
  Transmission Date: 20141002
  Serious: Yes (Other)
  Sender: FDA-Public Use
  Company Number: IT-014872

PATIENT
  Age: 81 Year
  Sex: Male

DRUGS (10)
  1. FIRMAGON [Suspect]
     Indication: PROSTATE CANCER
     Dosage: (80 MG 1X/MONTH INTRAMUSCULAR)
     Route: 030
     Dates: start: 20131101, end: 20140225
  2. CALCIUM CARBONATE [Concomitant]
  3. MS CONTIN [Concomitant]
  4. CASODEX [Concomitant]
  5. LYRICA [Concomitant]
  6. ORUDIS [Concomitant]
  7. LASIX /00032601/ [Concomitant]
  8. PLASIL /00041902/ [Concomitant]
  9. LIMPIDEX [Concomitant]
  10. MOVICOL /01749801/ [Concomitant]

REACTIONS (5)
  - Injection site pain [None]
  - Injection site reaction [None]
  - Injection site nodule [None]
  - Incorrect route of drug administration [None]
  - No therapeutic response [None]
